FAERS Safety Report 25821692 (Version 1)
Quarter: 2025Q3

REPORT INFORMATION
  Report Type: Spontaneous
  Country: US (occurrence: US)
  Receive Date: 20250919
  Receipt Date: 20250919
  Transmission Date: 20251020
  Serious: No
  Sender: EMD SERONO INC
  Company Number: US-Merck Healthcare KGaA-2025047548

PATIENT
  Age: 24 Year
  Sex: Female

DRUGS (3)
  1. OVIDREL [Suspect]
     Active Substance: CHORIOGONADOTROPIN ALFA
     Indication: Infertility
  2. GONAL-F [Suspect]
     Active Substance: FOLLITROPIN
     Indication: Infertility
     Dosage: GONAL F 450 IU MDV MIX AND INJECT 375 IU EACH NIGHT
  3. CETROTIDE [Suspect]
     Active Substance: CETRORELIX ACETATE
     Indication: Infertility
     Dosage: 0.25 MG INJECTION MIX AND INJECT 1 KIT DAILY STARTING MID CYCLE.

REACTIONS (1)
  - Malaise [Not Recovered/Not Resolved]

NARRATIVE: CASE EVENT DATE: 20250915
